FAERS Safety Report 4304789-1 (Version None)
Quarter: 2004Q1

REPORT INFORMATION
  Report Type: 
  Country: None (occurrence: None)
  Receive Date: 20040226
  Receipt Date: 20031210
  Transmission Date: 20041129
  Serious: No
  Sender: FDA-Public Use
  Company Number: US-GLAXOSMITHKLINE-A0442652A

PATIENT
  Age: 54 Year

DRUGS (6)
  1. WELLBUTRIN [Suspect]
     Dosage: 150MG PER DAY
     Route: 048
  2. WELLBUTRIN [Suspect]
     Dosage: 100MG TWICE PER DAY
     Route: 048
  3. COMBIPATCH [Concomitant]
  4. DHEA [Concomitant]
  5. DONG QUAI ROOT [Concomitant]
  6. DAMIANA [Concomitant]

REACTIONS (3)
  - ANORGASMIA [None]
  - INADEQUATE LUBRICATION [None]
  - LIBIDO DECREASED [None]
